FAERS Safety Report 23955055 (Version 1)
Quarter: 2024Q2

REPORT INFORMATION
  Report Type: Spontaneous
  Country: PL (occurrence: PL)
  Receive Date: 20240610
  Receipt Date: 20240610
  Transmission Date: 20240716
  Serious: Yes (Other)
  Sender: FDA-Public Use
  Company Number: PL-URPL-2-1247-2019

PATIENT
  Sex: Male

DRUGS (1)
  1. CLOPIDOGREL [Suspect]
     Active Substance: CLOPIDOGREL BISULFATE
     Indication: Product used for unknown indication
     Dosage: 1 DOSAGE FORM (THERAPY ONGOING)
     Route: 048
     Dates: start: 2018

REACTIONS (7)
  - Rash [Unknown]
  - Infarction [Unknown]
  - Seizure [Unknown]
  - Haemorrhage [Unknown]
  - Asthenia [Unknown]
  - Sensitisation [Unknown]
  - Syncope [Unknown]

NARRATIVE: CASE EVENT DATE: 20190723
